FAERS Safety Report 9862850 (Version 1)
Quarter: 2014Q1

REPORT INFORMATION
  Report Type: Spontaneous
  Country: DE (occurrence: DE)
  Receive Date: 20140203
  Receipt Date: 20140203
  Transmission Date: 20141002
  Serious: Yes (Other)
  Sender: FDA-Public Use
  Company Number: PHHY2014DE011576

PATIENT
  Age: 74 Year
  Sex: Male

DRUGS (1)
  1. ZOMETA [Suspect]
     Indication: PROSTATE CANCER

REACTIONS (8)
  - Osteonecrosis of jaw [Unknown]
  - Toothache [Unknown]
  - Tooth disorder [Unknown]
  - Breath odour [Unknown]
  - Hypoaesthesia [Unknown]
  - Abscess [Unknown]
  - Inflammation [Unknown]
  - Actinomycosis [Unknown]
